FAERS Safety Report 20204208 (Version 1)
Quarter: 2021Q4

REPORT INFORMATION
  Report Type: Other
  Country: US (occurrence: None)
  Receive Date: 20211220
  Receipt Date: 20211220
  Transmission Date: 20220303
  Serious: Yes (Other)
  Sender: FDA-Public Use
  Company Number: US-ROCHE-1931568

PATIENT
  Sex: Female

DRUGS (11)
  1. RITUXIMAB [Suspect]
     Active Substance: RITUXIMAB
     Indication: Multiple sclerosis
     Route: 065
  2. OCREVUS [Suspect]
     Active Substance: OCRELIZUMAB
     Indication: Multiple sclerosis
     Route: 065
     Dates: start: 20200605
  3. BACLOFEN [Concomitant]
     Active Substance: BACLOFEN
  4. CARBAMAZEPINE [Concomitant]
     Active Substance: CARBAMAZEPINE
  5. GABLOFEN [Concomitant]
     Active Substance: BACLOFEN
  6. METHENAMINE HIPPURATE [Concomitant]
     Active Substance: METHENAMINE HIPPURATE
  7. MYRBETRIQ [Concomitant]
     Active Substance: MIRABEGRON
  8. PROLIA [Concomitant]
     Active Substance: DENOSUMAB
  9. REMERON [Concomitant]
     Active Substance: MIRTAZAPINE
  10. TOPIRAMATE [Concomitant]
     Active Substance: TOPIRAMATE
  11. VENLAFAXINE [Concomitant]
     Active Substance: VENLAFAXINE HYDROCHLORIDE

REACTIONS (2)
  - Off label use [Unknown]
  - Hepatitis C [Unknown]
